FAERS Safety Report 9517824 (Version 1)
Quarter: 2013Q3

REPORT INFORMATION
  Report Type: Spontaneous
  Country: US (occurrence: None)
  Receive Date: 20130910
  Receipt Date: 20130910
  Transmission Date: 20140515
  Serious: No
  Sender: FDA-Public Use
  Company Number: None

PATIENT
  Age: 31 Year
  Sex: Female

DRUGS (6)
  1. ALBUTEROL HFA [Suspect]
     Indication: ASTHMA EXERCISE INDUCED
     Dosage: 90 MCG PER ACTUATION, 2 PUFFS
     Route: 048
     Dates: start: 201208
  2. INHALER [Concomitant]
  3. VITAMINS [Concomitant]
  4. MULTI [Concomitant]
  5. B COMPLEX [Concomitant]
  6. D 600 [Concomitant]

REACTIONS (1)
  - Device malfunction [None]
